FAERS Safety Report 10035716 (Version 1)
Quarter: 2014Q1

REPORT INFORMATION
  Report Type: Spontaneous
  Country: ES (occurrence: None)
  Receive Date: 20140321
  Receipt Date: 20140321
  Transmission Date: 20141002
  Serious: Yes (Other)
  Sender: FDA-Public Use
  Company Number: SYM-2014-18739

PATIENT
  Age: 48 Year
  Sex: Female

DRUGS (1)
  1. BUPROPION [Suspect]
     Indication: DEPRESSIVE SYMPTOM
     Dosage: 1 IN 1 D
     Dates: start: 20120309, end: 20120427

REACTIONS (4)
  - Eosinophilia [None]
  - Myalgia [None]
  - Cough [None]
  - Haemoglobin decreased [None]
